FAERS Safety Report 10227546 (Version 1)
Quarter: 2014Q2

REPORT INFORMATION
  Report Type: Spontaneous
  Country: US (occurrence: None)
  Receive Date: 20140606
  Receipt Date: 20140606
  Transmission Date: 20141212
  Serious: Yes (Death, Other)
  Sender: FDA-Public Use
  Company Number: ADR-2014-00957

PATIENT
  Sex: Male

DRUGS (3)
  1. BACLOFEN INTRATHECAL [Suspect]
     Indication: MUSCLE SPASTICITY
  2. CLONIDINE INTRATHECAL [Suspect]
  3. DILAUDID INTRATHECAL [Suspect]

REACTIONS (1)
  - Lung carcinoma cell type unspecified stage IV [None]
